FAERS Safety Report 18750092 (Version 2)
Quarter: 2021Q1

REPORT INFORMATION
  Report Type: Report from Study
  Country: DE (occurrence: DE)
  Receive Date: 20210118
  Receipt Date: 20210119
  Transmission Date: 20210419
  Serious: Yes (Hospitalization)
  Sender: FDA-Public Use
  Company Number: DE-ROCHE-2749186

PATIENT
  Age: 34 Year
  Sex: Male
  Weight: 81 kg

DRUGS (4)
  1. NIVOLUMAB [Concomitant]
     Active Substance: NIVOLUMAB
     Indication: METASTASIS
     Route: 042
     Dates: start: 20201211
  2. VEMURAFENIB. [Suspect]
     Active Substance: VEMURAFENIB
     Indication: METASTATIC MALIGNANT MELANOMA
     Dosage: DATE OF MOST RECENT DOSE PRIOR TO SAE ONSET: 04/DEC/2020?VEMURAFENIB (960 MG TWICE A DAY) WILL BE TA
     Route: 048
     Dates: start: 20200609
  3. COBIMETINIB. [Suspect]
     Active Substance: COBIMETINIB
     Indication: METASTATIC MALIGNANT MELANOMA
     Dosage: DATE OF MOST RECENT DOSE PRIOR TO SAE ONSET: 03/DEC/2020?COBIMETINIB (60 MG ONCE A DAY) WILL BE TAKE
     Route: 048
     Dates: start: 20200609
  4. IPILIMUMAB [Concomitant]
     Active Substance: IPILIMUMAB
     Indication: METASTASIS
     Route: 042
     Dates: start: 20201211

REACTIONS (1)
  - Metastases to central nervous system [Recovered/Resolved]

NARRATIVE: CASE EVENT DATE: 20201220
